FAERS Safety Report 14418098 (Version 1)
Quarter: 2018Q1

REPORT INFORMATION
  Report Type: Report from Study
  Country: US (occurrence: US)
  Receive Date: 20180122
  Receipt Date: 20180122
  Transmission Date: 20180509
  Serious: Yes (Hospitalization)
  Sender: FDA-Public Use
  Company Number: US-BAYER-2017-195932

PATIENT
  Age: 69 Year
  Sex: Male

DRUGS (1)
  1. NEXAVAR [Suspect]
     Active Substance: SORAFENIB
     Indication: HEPATOCELLULAR CARCINOMA
     Dosage: 200 MG, BID
     Route: 048
     Dates: start: 20170906, end: 20171119

REACTIONS (12)
  - Blood sodium decreased [Not Recovered/Not Resolved]
  - Decreased activity [None]
  - Decreased appetite [None]
  - Fatigue [None]
  - Pruritus [Recovered/Resolved]
  - Thermal burn [None]
  - Diarrhoea [None]
  - White blood cell count decreased [None]
  - Rash [Recovered/Resolved]
  - Laboratory test abnormal [None]
  - Dry skin [Recovered/Resolved]
  - Off label use [None]

NARRATIVE: CASE EVENT DATE: 2017
